FAERS Safety Report 4564731-5 (Version None)
Quarter: 2005Q1

REPORT INFORMATION
  Report Type: 
  Country: None (occurrence: None)
  Receive Date: 20050128
  Receipt Date: 20041229
  Transmission Date: 20050727
  Serious: Yes (Life-Threatening, Hospitalization)
  Sender: FDA-Public Use
  Company Number: JP-ABBOTT-04I-087-0284946-00

PATIENT
  Sex: Male

DRUGS (13)
  1. CLARITH [Suspect]
     Indication: HELICOBACTER INFECTION
     Route: 048
     Dates: start: 20041130, end: 20041207
  2. LEUPROLIDE ACETATE [Suspect]
     Indication: PROSTATE CANCER
     Route: 058
     Dates: start: 20040513, end: 20041028
  3. LEUPROLIDE ACETATE [Suspect]
     Dosage: SR
     Route: 058
     Dates: start: 20041125
  4. TAKEPRON CAPSULES [Suspect]
     Indication: HELICOBACTER INFECTION
     Route: 048
     Dates: start: 20041130, end: 20041207
  5. TAKEPRON CAPSULES [Suspect]
     Route: 048
     Dates: start: 20041208, end: 20041227
  6. AMOXICILLIN [Suspect]
     Indication: HELICOBACTER INFECTION
     Route: 048
     Dates: start: 20041130, end: 20041207
  7. ECABET MONOSODIUM [Suspect]
     Indication: GASTRIC ULCER
     Route: 048
     Dates: start: 20041208, end: 20041228
  8. TROXIPIDE [Concomitant]
     Indication: GASTRIC ULCER
     Route: 048
     Dates: end: 20041227
  9. FAMOTIDINE [Concomitant]
     Indication: GASTRIC ULCER
     Route: 048
     Dates: end: 20041227
  10. METRONIDAZOLE [Concomitant]
     Indication: DRUG USE FOR UNKNOWN INDICATION
     Route: 048
     Dates: end: 20041227
  11. OXETACAINE [Concomitant]
     Indication: GASTRIC ULCER
     Route: 048
     Dates: end: 20041129
  12. KOLANTYL GEL [Concomitant]
     Indication: GASTRIC ULCER
     Route: 048
     Dates: end: 20041129
  13. BICALUTAMIDE [Concomitant]
     Indication: DRUG USE FOR UNKNOWN INDICATION
     Route: 048
     Dates: start: 20031023, end: 20040930

REACTIONS (20)
  - ALANINE AMINOTRANSFERASE INCREASED [None]
  - ASCITES [None]
  - ASPARTATE AMINOTRANSFERASE INCREASED [None]
  - BLOOD ALBUMIN DECREASED [None]
  - BLOOD ALKALINE PHOSPHATASE INCREASED [None]
  - BLOOD BILIRUBIN INCREASED [None]
  - BLOOD CHOLINESTERASE DECREASED [None]
  - BLOOD LACTATE DEHYDROGENASE INCREASED [None]
  - COMPUTERISED TOMOGRAM ABNORMAL [None]
  - CONDITION AGGRAVATED [None]
  - GAMMA-GLUTAMYLTRANSFERASE INCREASED [None]
  - GLUCOSE URINE PRESENT [None]
  - HEPATIC ATROPHY [None]
  - HEPATOTOXICITY [None]
  - HOT FLUSH [None]
  - HYPERGLYCAEMIA [None]
  - JAUNDICE [None]
  - MALAISE [None]
  - OEDEMA PERIPHERAL [None]
  - ORAL INTAKE REDUCED [None]
